FAERS Safety Report 19596092 (Version 2)
Quarter: 2022Q2

REPORT INFORMATION
  Report Type: Spontaneous
  Country: IN (occurrence: IN)
  Receive Date: 20210723
  Receipt Date: 20220527
  Transmission Date: 20220721
  Serious: Yes (Hospitalization, Other)
  Sender: FDA-Public Use
  Company Number: IN-SUN PHARMACEUTICAL INDUSTRIES LTD-2021R1-304866

PATIENT
  Age: 65 Year
  Sex: Female

DRUGS (2)
  1. CEPHALEXIN [Suspect]
     Active Substance: CEPHALEXIN
     Indication: Skin infection
     Dosage: 500 MILLIGRAM, BID
     Route: 065
  2. PHENYTOIN [Suspect]
     Active Substance: PHENYTOIN
     Indication: Prophylaxis
     Dosage: 100 MILLIGRAM, TID
     Route: 065

REACTIONS (4)
  - Overdose [Unknown]
  - Stevens-Johnson syndrome [Unknown]
  - Epidermal necrosis [Unknown]
  - Condition aggravated [Unknown]
